FAERS Safety Report 14114356 (Version 1)
Quarter: 2017Q4

REPORT INFORMATION
  Report Type: Spontaneous
  Country: US (occurrence: US)
  Receive Date: 20171023
  Receipt Date: 20171023
  Transmission Date: 20180321
  Serious: Yes (Other)
  Sender: FDA-Public Use
  Company Number: US-PFIZER INC-2017449994

PATIENT
  Age: 82 Year
  Sex: Female

DRUGS (12)
  1. IBRANCE [Suspect]
     Active Substance: PALBOCICLIB
     Indication: BREAST CANCER METASTATIC
     Dosage: 125 MG, CYCLIC (DAYS 1 THROUGH 21 OF EACH 28 DAY CYCLE)
     Route: 048
  2. MULTIVITAMIN [Concomitant]
     Active Substance: VITAMINS
     Dosage: UNK, 1X/DAY
     Route: 048
  3. VITAMIN B12 [Concomitant]
     Active Substance: CYANOCOBALAMIN
     Dosage: 50 UG, 1X/DAY
     Route: 048
  4. IBRANCE [Suspect]
     Active Substance: PALBOCICLIB
     Dosage: 75 MG, CYCLIC (DAILY FOR 21 DAYS WITH THE CYCLE EVERY 28 DAYS)
     Route: 048
  5. CRANBERRY. [Concomitant]
     Active Substance: CRANBERRY
     Dosage: UNK, 1X/DAY
     Route: 048
  6. FASLODEX [Concomitant]
     Active Substance: FULVESTRANT
     Indication: BREAST CANCER METASTATIC
     Dosage: 500 MG, CYCLIC (MONTHLY AFTER A LOADING DOSE) DAYS 1, 15, 29 FOR CYCLE 1 AND THEN EVERY 28 DAYS
     Route: 030
  7. LISINOPRIL. [Concomitant]
     Active Substance: LISINOPRIL
     Dosage: 10 MG, AS NEEDED (DAILY)
     Route: 048
  8. CITRACAL + D [Concomitant]
     Active Substance: CALCIUM CITRATE\VITAMIN D
     Dosage: 1 DF, 2X/DAY (250 MG CALCIUM-500 UNIT)
     Route: 048
  9. FLAXSEED [Concomitant]
     Active Substance: FLAX SEED
     Dosage: UNK, 1X/DAY
     Route: 048
  10. VITAMIN D3 [Concomitant]
     Active Substance: CHOLECALCIFEROL
     Dosage: 2000 IU, 1X/DAY
     Route: 048
  11. COENZYME Q10 [Concomitant]
     Active Substance: UBIDECARENONE
     Dosage: 10 MG, 2X/DAY
     Route: 048
  12. XGEVA [Concomitant]
     Active Substance: DENOSUMAB
     Indication: METASTASES TO BONE
     Dosage: 120 MG, CYCLIC (EVERY 28 DAYS X 12 CYCLES)/MONTHLY
     Route: 058

REACTIONS (13)
  - Joint range of motion decreased [Unknown]
  - Neuropathy peripheral [Unknown]
  - Nausea [Unknown]
  - Pain [Unknown]
  - Nocturia [Unknown]
  - Anaemia [Unknown]
  - Fatigue [Unknown]
  - Asthenia [Unknown]
  - Pollakiuria [Unknown]
  - Full blood count decreased [Unknown]
  - Leukopenia [Unknown]
  - Decreased appetite [Unknown]
  - Myalgia [Unknown]
